FAERS Safety Report 10651749 (Version 1)
Quarter: 2014Q4

REPORT INFORMATION
  Report Type: Spontaneous
  Country: US (occurrence: None)
  Receive Date: 20141212
  Receipt Date: 20141212
  Transmission Date: 20150529
  Serious: Yes (Hospitalization)
  Sender: FDA-Public Use
  Company Number: None

PATIENT
  Age: 55 Year
  Sex: Male
  Weight: 93.2 kg

DRUGS (2)
  1. DICLOXACILLIN [Suspect]
     Active Substance: DICLOXACILLIN
     Dosage: 2 TAB QID PO
     Route: 048
     Dates: start: 20140715, end: 20140719
  2. LISINOPRIL. [Suspect]
     Active Substance: LISINOPRIL
     Indication: HYPERTENSION
     Dosage: 1 TAB EVERY DAY PO
     Route: 048
     Dates: start: 20051208, end: 20140719

REACTIONS (1)
  - Angioedema [None]

NARRATIVE: CASE EVENT DATE: 20140722
